FAERS Safety Report 7108660-1 (Version None)
Quarter: 2010Q4

REPORT INFORMATION
  Report Type: 
  Country: None (occurrence: None)
  Receive Date: 20101117
  Receipt Date: 20101110
  Transmission Date: 20110411
  Serious: Yes (Death, Other)
  Sender: FDA-Public Use
  Company Number: DE-ROCHE-728303

PATIENT
  Sex: Female
  Weight: 65.2 kg

DRUGS (3)
  1. BEVACIZUMAB [Suspect]
     Indication: BRONCHIAL CARCINOMA
     Dosage: THE 6TH CYCLE STARTED ON 21-APR-2010
     Route: 042
     Dates: end: 20100820
  2. PACLITAXEL [Concomitant]
     Dosage: THE 6TH CYCLE STARTED ON 21-APR-2010
     Route: 042
     Dates: end: 20100708
  3. CARBOPLATIN [Concomitant]
     Indication: BRONCHIAL CARCINOMA
     Dosage: THE 6TH CYCLE STARTED ON 21-APR-2010
     Route: 042
     Dates: end: 20100708

REACTIONS (4)
  - ABDOMINAL NEOPLASM [None]
  - CEREBRAL HAEMORRHAGE [None]
  - MALIGNANT NEOPLASM PROGRESSION [None]
  - METASTASES TO CENTRAL NERVOUS SYSTEM [None]
